FAERS Safety Report 4461193-3 (Version None)
Quarter: 2004Q3

REPORT INFORMATION
  Report Type: 
  Country: None (occurrence: None)
  Receive Date: 20040923
  Receipt Date: 20040923
  Transmission Date: 20050211
  Serious: No
  Sender: FDA-Public Use
  Company Number: None

PATIENT
  Sex: Female
  Weight: 73.9363 kg

DRUGS (8)
  1. REMICADE [Suspect]
     Indication: RHEUMATOID ARTHRITIS
     Dosage: 400 MG IV Q8WKS
     Route: 042
     Dates: start: 20030201
  2. RADIATION TO NECK [Suspect]
     Dosage: ?
  3. NORVASC [Concomitant]
  4. PREMARIN [Concomitant]
  5. BEXTRA [Concomitant]
  6. FOLIC ACID [Concomitant]
  7. METHOTREXATE [Concomitant]
  8. ULTRAM [Concomitant]

REACTIONS (2)
  - LARYNGEAL CANCER [None]
  - LUNG NEOPLASM MALIGNANT [None]
